FAERS Safety Report 6580978-0 (Version None)
Quarter: 2010Q1

REPORT INFORMATION
  Report Type: 
  Country: None (occurrence: None)
  Receive Date: 20100215
  Receipt Date: 20100204
  Transmission Date: 20100710
  Serious: Yes (Other)
  Sender: FDA-Public Use
  Company Number: SG-BRISTOL-MYERS SQUIBB COMPANY-14949796

PATIENT
  Age: 55 Year
  Sex: Female

DRUGS (2)
  1. TRIAMCINOLONE ACETONIDE [Suspect]
     Indication: TRIGGER FINGER
  2. LIDOCAINE [Concomitant]

REACTIONS (1)
  - NECROTISING FASCIITIS STAPHYLOCOCCAL [None]
